FAERS Safety Report 4907093-3 (Version None)
Quarter: 2006Q1

REPORT INFORMATION
  Report Type: 
  Country: None (occurrence: None)
  Receive Date: 20060206
  Receipt Date: 20060125
  Transmission Date: 20060701
  Serious: Yes (Hospitalization, Other)
  Sender: FDA-Public Use
  Company Number: 2006007757

PATIENT
  Age: 52 Year
  Sex: Female

DRUGS (1)
  1. PREDNISOLONE [Suspect]
     Indication: MYASTHENIA GRAVIS
     Dosage: (1 D)

REACTIONS (7)
  - ANXIETY [None]
  - DEPRESSION [None]
  - IRRITABILITY [None]
  - MANIA [None]
  - MUSCULAR WEAKNESS [None]
  - SUICIDAL IDEATION [None]
  - THERAPY NON-RESPONDER [None]
